FAERS Safety Report 8225347-2 (Version None)
Quarter: 2012Q1

REPORT INFORMATION
  Report Type: 
  Country: None (occurrence: None)
  Receive Date: 20120321
  Receipt Date: 20120313
  Transmission Date: 20120608
  Serious: Yes (Other)
  Sender: FDA-Public Use
  Company Number: JP-GLAXOSMITHKLINE-B0785225A

PATIENT
  Sex: Male

DRUGS (3)
  1. MEPTIN [Concomitant]
     Indication: CHRONIC OBSTRUCTIVE PULMONARY DISEASE
     Route: 055
     Dates: start: 20100904
  2. SPIRIVA [Concomitant]
     Indication: CHRONIC OBSTRUCTIVE PULMONARY DISEASE
     Dosage: 2.5MCG PER DAY
     Route: 055
     Dates: start: 20100904
  3. FLUTICASONE PROPIONATE/SALMETEROL [Suspect]
     Indication: CHRONIC OBSTRUCTIVE PULMONARY DISEASE
     Dosage: 500MCG PER DAY
     Route: 055
     Dates: start: 20100904

REACTIONS (1)
  - CARDIAC FAILURE [None]
